FAERS Safety Report 21517524 (Version 1)
Quarter: 2022Q4

REPORT INFORMATION
  Report Type: Spontaneous
  Country: AU (occurrence: AU)
  Receive Date: 20221028
  Receipt Date: 20221028
  Transmission Date: 20230113
  Serious: Yes (Death, Congenital Anomaly, Other)
  Sender: FDA-Public Use
  Company Number: AU-IPCA LABORATORIES LIMITED-IPC-2022-AU-001794

PATIENT

DRUGS (1)
  1. WARFARIN [Suspect]
     Active Substance: WARFARIN
     Indication: Product used for unknown indication
     Dosage: UNK
     Route: 064

REACTIONS (5)
  - Teratogenicity [Fatal]
  - Dandy-Walker syndrome [Fatal]
  - Haemorrhage foetal [Fatal]
  - Hydrocephalus [Fatal]
  - Foetal exposure during pregnancy [Unknown]
